FAERS Safety Report 24975659 (Version 1)
Quarter: 2025Q1

REPORT INFORMATION
  Report Type: Spontaneous
  Country: ES (occurrence: ES)
  Receive Date: 20250217
  Receipt Date: 20250217
  Transmission Date: 20250408
  Serious: Yes (Other)
  Sender: AUROBINDO
  Company Number: ES-AEMPS-1628346

PATIENT
  Age: 90 Year
  Sex: Female

DRUGS (2)
  1. TRAMADOL [Interacting]
     Active Substance: TRAMADOL
     Indication: Musculoskeletal chest pain
     Dosage: 25 MILLIGRAM, 3 TIMES A DAY
     Route: 048
     Dates: start: 20241230, end: 20250104
  2. FENTANYL [Interacting]
     Active Substance: FENTANYL
     Indication: Pain
     Route: 062
     Dates: start: 20221014

REACTIONS (3)
  - Nausea [Recovering/Resolving]
  - Constipation [Recovering/Resolving]
  - Hallucination, auditory [Recovered/Resolved]

NARRATIVE: CASE EVENT DATE: 20250102
